FAERS Safety Report 7383850-1 (Version None)
Quarter: 2011Q1

REPORT INFORMATION
  Report Type: 
  Country: None (occurrence: None)
  Receive Date: 20110330
  Receipt Date: 20110323
  Transmission Date: 20110831
  Serious: Yes (Death)
  Sender: FDA-Public Use
  Company Number: JP-ASTRAZENECA-2011SE11146

PATIENT
  Age: 36 Year
  Sex: Female

DRUGS (25)
  1. SEROQUEL [Suspect]
     Route: 048
     Dates: start: 20100123
  2. SEROQUEL [Suspect]
     Route: 048
     Dates: start: 20100123, end: 20110215
  3. MAGLAX [Concomitant]
     Route: 048
     Dates: start: 20090620
  4. RISPERIDONE [Concomitant]
     Route: 048
     Dates: start: 20110222, end: 20110222
  5. LORMETAZEPAM [Concomitant]
     Route: 048
     Dates: start: 20110222, end: 20110222
  6. SEROQUEL [Suspect]
     Indication: BIPOLAR II DISORDER
     Route: 048
     Dates: start: 20090704, end: 20100122
  7. FLUNITRAZEPAM [Concomitant]
     Route: 048
     Dates: start: 20090620, end: 20110222
  8. SEROQUEL [Suspect]
     Indication: DYSTHYMIC DISORDER
     Route: 048
     Dates: start: 20090704, end: 20100122
  9. SENNOSIDE [Concomitant]
     Route: 048
     Dates: start: 20090620
  10. BUFFERIN A [Concomitant]
     Dates: start: 20110222, end: 20110222
  11. BROTIZOLAM [Concomitant]
     Route: 048
     Dates: start: 20110222, end: 20110222
  12. QUAZEPAM [Concomitant]
     Route: 048
     Dates: start: 20110222, end: 20110222
  13. PAROXETINE HYDROCHLORIDE [Concomitant]
     Route: 048
     Dates: start: 20110222, end: 20110222
  14. ALPRAZOLAM [Concomitant]
     Route: 048
     Dates: start: 20110222, end: 20110222
  15. SEROQUEL [Suspect]
     Route: 048
     Dates: start: 20100123
  16. SEROQUEL [Suspect]
     Route: 048
     Dates: start: 20100123, end: 20110215
  17. SEROQUEL [Suspect]
     Route: 048
     Dates: start: 20110216, end: 20110221
  18. SEROQUEL [Suspect]
     Route: 048
     Dates: start: 20110216, end: 20110221
  19. SEROQUEL [Suspect]
     Route: 048
     Dates: start: 20110222, end: 20110222
  20. SEROQUEL [Suspect]
     Dosage: MORE THAN 200 TABLETS (THERE WAS A POSSIBILITY THAT PATIENT STORED OTHER DRUGS PRESCRIBED BEFORE)
     Route: 048
  21. CARBAMAZEPINE [Concomitant]
     Indication: HEPATIC FUNCTION ABNORMAL
  22. SEROQUEL [Suspect]
     Dosage: MORE THAN 200 TABLETS (THERE WAS A POSSIBILITY THAT PATIENT STORED OTHER DRUGS PRESCRIBED BEFORE)
     Route: 048
  23. LEXOTAN [Concomitant]
     Route: 048
     Dates: start: 20090620, end: 20110222
  24. SEROQUEL [Suspect]
     Route: 048
     Dates: start: 20110222, end: 20110222
  25. SEVEN EP [Concomitant]
     Route: 048
     Dates: start: 20090620

REACTIONS (6)
  - VENTRICULAR TACHYCARDIA [None]
  - INTENTIONAL OVERDOSE [None]
  - VENTRICULAR FIBRILLATION [None]
  - COMPLETED SUICIDE [None]
  - COMA [None]
  - CONVULSION [None]
